FAERS Safety Report 4322977-5 (Version None)
Quarter: 2004Q1

REPORT INFORMATION
  Report Type: 
  Country: None (occurrence: None)
  Receive Date: 20040322
  Receipt Date: 20040315
  Transmission Date: 20041129
  Serious: Yes (Life-Threatening, Hospitalization, Other)
  Sender: FDA-Public Use
  Company Number: 2004-00980

PATIENT
  Sex: Female

DRUGS (4)
  1. FERRLECIT [Suspect]
     Indication: IRON DEFICIENCY ANAEMIA
     Dosage: SINGLE, INTRAVENOUS
     Route: 042
     Dates: start: 20040201, end: 20040201
  2. EPOGEN [Concomitant]
  3. INSULIN [Concomitant]
  4. ACE INHIBITOR NOS [Concomitant]

REACTIONS (4)
  - ANAPHYLACTIC REACTION [None]
  - BLOOD PRESSURE INCREASED [None]
  - DISSECTING CORONARY ARTERY ANEURYSM [None]
  - MYOCARDIAL INFARCTION [None]
